FAERS Safety Report 5493421-X (Version None)
Quarter: 2007Q4

REPORT INFORMATION
  Report Type: 
  Country: None (occurrence: None)
  Receive Date: 20071019
  Receipt Date: 20071004
  Transmission Date: 20080405
  Serious: Yes (Life-Threatening, Hospitalization, Other)
  Sender: FDA-Public Use
  Company Number: 100#03#2007-03975

PATIENT
  Age: 67 Year
  Sex: Male

DRUGS (28)
  1. DOXYCYCLINE [Suspect]
     Indication: DRUG USE FOR UNKNOWN INDICATION
     Dosage: ORAL
     Route: 048
  2. ACOMPLIA [Suspect]
     Indication: WEIGHT CONTROL
     Dosage: 20 MG (1/1 DAYS) ORAL
     Route: 048
  3. DOXYCYCLINE [Concomitant]
  4. FORMOTEROL FUMARATE (FORMOTEROL FUMARATE) (EFORMOTEROL) [Concomitant]
  5. ALLOPURINOL (ALLOPURINOL) (ALLOPURINOL) [Concomitant]
  6. ACETYLSALICYLIC ACID (ACETYLSALICYLIC ACID) (ACETYLSALICYLIC ACID) [Concomitant]
  7. AMOXICILLIN [Concomitant]
  8. ATORVASTATIN (ATORVASTATIN0 (ATORVASTATIN) [Concomitant]
  9. BUDESONIDE (BUDESONIDE0 (BUDESONIDE) [Concomitant]
  10. CHLORHEXIDINE GLUCONATE (CHLORHEXIDINE GLUCONATE) (CHLORHEXIDINE) [Concomitant]
  11. CIALIS (TADALAFIL) (TADALKAFIL) [Concomitant]
  12. DAKTACORT (DAKTACORT) (HYDROCORTISONE, MICONAZOLE) [Concomitant]
  13. DIPROBASE (DIPROBASE CREAM) (PARAFFIN SOFT WHITE) [Concomitant]
  14. DOUBLEBASE L (ACETYLATED WOOL ALCOHOLS, ISOPROPYL MYRISTATE, LIQUID PA [Concomitant]
  15. ERYTHROMYCIN [Concomitant]
  16. FORMOTEROL (FORMOTEROL) (EFPR,PTERP;_ [Concomitant]
  17. FUROSEMIDE [Concomitant]
  18. GLIPIZIDE [Concomitant]
  19. HYDROCHLOROTHIAZIDE [Concomitant]
  20. LANSOPRAZOLE [Concomitant]
  21. LISINOPRIL [Concomitant]
  22. METOFORMIN(METFORMIN) (METFORMIN) [Concomitant]
  23. MICONAZOLE (MICONAZOLE) (MICONAZOLE) [Concomitant]
  24. PREDNISOLONE [Concomitant]
  25. RAMIPRIL [Concomitant]
  26. ROSIGLITAZONE(ROSIGLITAZONE) (ROSIGLITAZONE) [Concomitant]
  27. SALAMOL (SALBUTAMOL) (SALBUTAMOL) [Concomitant]
  28. TIOTROPIUM BROMIDE (TIOTROPIUM BROMIDE) (TIOTROPIUM BROMIDE) [Concomitant]

REACTIONS (9)
  - BLOOD GLUCOSE INCREASED [None]
  - COUGH [None]
  - DERMATITIS EXFOLIATIVE [None]
  - DRUG INTERACTION [None]
  - DYSPNOEA [None]
  - HYPOTENSION [None]
  - RENAL FAILURE ACUTE [None]
  - TOXIC SHOCK SYNDROME [None]
  - WHITE BLOOD CELL COUNT INCREASED [None]
